FAERS Safety Report 7642054-5 (Version None)
Quarter: 2011Q3

REPORT INFORMATION
  Report Type: 
  Country: None (occurrence: None)
  Receive Date: 20110728
  Receipt Date: 20110715
  Transmission Date: 20111222
  Serious: Yes (Death, Other)
  Sender: FDA-Public Use
  Company Number: FI-ELI_LILLY_AND_COMPANY-FI201107003129

PATIENT
  Sex: Male

DRUGS (4)
  1. ACETAMINOPHEN [Concomitant]
  2. CALCIUM +D3 [Concomitant]
  3. FORTEO [Suspect]
     Dosage: UNK, UNKNOWN
     Dates: start: 20110201
  4. HYDROCORTISONE [Concomitant]
     Dosage: 10 MG, UNK

REACTIONS (4)
  - DEATH [None]
  - URINARY TRACT INFECTION [None]
  - RENAL DISORDER [None]
  - SEPSIS [None]
